FAERS Safety Report 6371049-7 (Version None)
Quarter: 2009Q3

REPORT INFORMATION
  Report Type: 
  Country: None (occurrence: None)
  Receive Date: 20090923
  Receipt Date: 20090910
  Transmission Date: 20100115
  Serious: Yes (Congenital Anomaly, Other)
  Sender: FDA-Public Use
  Company Number: JP-PFIZER INC-2009271229

PATIENT

DRUGS (1)
  1. AMLODIPINE BESYLATE [Suspect]
     Route: 064

REACTIONS (5)
  - APGAR SCORE LOW [None]
  - DISSEMINATED INTRAVASCULAR COAGULATION IN NEWBORN [None]
  - DRUG EXPOSURE DURING PREGNANCY [None]
  - MATERNAL DRUGS AFFECTING FOETUS [None]
  - PERIPHERAL CIRCULATORY FAILURE [None]
